FAERS Safety Report 6193957-2 (Version None)
Quarter: 2009Q2

REPORT INFORMATION
  Report Type: 
  Country: None (occurrence: None)
  Receive Date: 20090518
  Receipt Date: 20090508
  Transmission Date: 20091009
  Serious: Yes (Other)
  Sender: FDA-Public Use
  Company Number: PHHY2009JP15361

PATIENT
  Age: 46 Year
  Sex: Female

DRUGS (1)
  1. ZOMETA [Suspect]
     Indication: METASTASES TO BONE
     Dosage: 4 MG/MONTH
     Route: 042

REACTIONS (6)
  - BONE LESION [None]
  - DENTAL CLEANING [None]
  - FISTULA [None]
  - OSTEONECROSIS [None]
  - PURULENT DISCHARGE [None]
  - TOOTHACHE [None]
